FAERS Safety Report 8528761 (Version 4)
Quarter: 2013Q3

REPORT INFORMATION
  Report Type: Spontaneous
  Country: US (occurrence: None)
  Receive Date: 20120417
  Receipt Date: 20130815
  Transmission Date: 20140515
  Serious: Yes (Hospitalization, Other)
  Sender: FDA-Public Use
  Company Number: ADR-2012-00055

PATIENT
  Sex: Female

DRUGS (2)
  1. BACLOFEN [Suspect]
     Indication: MUSCLE SPASTICITY
     Dosage: 1400MCG/DAY ; 2000MCG/ML
  2. BACLOFEN [Suspect]
     Indication: CEREBRAL PALSY
     Dosage: 1400MCG/DAY ; 2000MCG/ML

REACTIONS (15)
  - Drug withdrawal syndrome [None]
  - Medical device complication [None]
  - Mental status changes [None]
  - Agitation [None]
  - Pruritus [None]
  - Muscle spasticity [None]
  - Pain [None]
  - Confusional state [None]
  - Unresponsive to stimuli [None]
  - Musculoskeletal stiffness [None]
  - Discomfort [None]
  - Muscle rigidity [None]
  - Altered state of consciousness [None]
  - Muscle tightness [None]
  - Heart rate increased [None]
